FAERS Safety Report 14336969 (Version 1)
Quarter: 2017Q4

REPORT INFORMATION
  Report Type: Spontaneous
  Country: DE (occurrence: DE)
  Receive Date: 20171229
  Receipt Date: 20171229
  Transmission Date: 20180321
  Serious: Yes (Other)
  Sender: FDA-Public Use
  Company Number: DE-AUROBINDO-AUR-APL-2017-48077

PATIENT
  Age: 80 Year
  Sex: Male
  Weight: 70 kg

DRUGS (2)
  1. RISEDRONATE 35MG [Suspect]
     Active Substance: RISEDRONATE SODIUM
     Indication: OSTEOPOROSIS
     Route: 048
     Dates: start: 20171004
  2. GLAUPAX [Suspect]
     Active Substance: ACETAZOLAMIDE
     Indication: ATAXIA
     Route: 048
     Dates: start: 2010

REACTIONS (1)
  - Diplegia [Recovered/Resolved]

NARRATIVE: CASE EVENT DATE: 20171004
